FAERS Safety Report 20418230 (Version 2)
Quarter: 2022Q1

REPORT INFORMATION
  Report Type: Report from Study
  Country: US (occurrence: US)
  Receive Date: 20220202
  Receipt Date: 20220315
  Transmission Date: 20220423
  Serious: No
  Sender: FDA-Public Use
  Company Number: US-MYLANLABS-2022M1005421

PATIENT
  Sex: Female
  Weight: 136.1 kg

DRUGS (3)
  1. CLOZAPINE [Suspect]
     Active Substance: CLOZAPINE
     Indication: Schizoaffective disorder
     Dosage: UNK, QD
     Route: 048
     Dates: start: 20211013
  2. LITHOBID [Concomitant]
     Active Substance: LITHIUM CARBONATE
     Dosage: UNK
  3. COGENTINOL [Concomitant]
     Dosage: UNK

REACTIONS (1)
  - No adverse event [Unknown]
